FAERS Safety Report 24187105 (Version 1)
Quarter: 2024Q3

REPORT INFORMATION
  Report Type: Spontaneous
  Country: US (occurrence: US)
  Receive Date: 20240808
  Receipt Date: 20240808
  Transmission Date: 20241017
  Serious: Yes (Other)
  Sender: NOVITIUM PHARMA
  Company Number: US-NOVITIUMPHARMA-2024USNVP01509

PATIENT
  Age: 53 Year
  Sex: Male

DRUGS (2)
  1. PREDNISONE [Suspect]
     Active Substance: PREDNISONE
     Indication: Sarcoidosis
  2. METHOTREXATE [Concomitant]
     Active Substance: METHOTREXATE
     Indication: Sarcoidosis

REACTIONS (1)
  - Bronchopulmonary aspergillosis [Recovering/Resolving]
